FAERS Safety Report 4804037-X (Version None)
Quarter: 2005Q4

REPORT INFORMATION
  Report Type: 
  Country: None (occurrence: None)
  Receive Date: 20051018
  Receipt Date: 20051018
  Transmission Date: 20060501
  Serious: Yes (Life-Threatening, Hospitalization)
  Sender: FDA-Public Use
  Company Number: None

PATIENT
  Age: 66 Year
  Sex: Female
  Weight: 68.0396 kg

DRUGS (5)
  1. ALDACTONE [Suspect]
  2. HUMIRA [Suspect]
  3. LIPITOR [Concomitant]
  4. SINEQUAN [Concomitant]
  5. KLONAPIN [Concomitant]

REACTIONS (1)
  - OESOPHAGEAL RUPTURE [None]
